FAERS Safety Report 9415278 (Version 1)
Quarter: 2013Q3

REPORT INFORMATION
  Report Type: Spontaneous
  Country: GB (occurrence: GB)
  Receive Date: 20130723
  Receipt Date: 20130723
  Transmission Date: 20140515
  Serious: Yes (Other)
  Sender: FDA-Public Use
  Company Number: GB-ASTRAZENECA-2013SE52497

PATIENT
  Age: 50 Year
  Sex: Male

DRUGS (5)
  1. QUETIAPINE [Suspect]
     Indication: MAJOR DEPRESSION
     Route: 048
     Dates: start: 20120416
  2. DIAZEPAM [Concomitant]
     Route: 048
     Dates: start: 201201
  3. OMEPRAZOLE [Concomitant]
     Route: 048
     Dates: start: 200506
  4. SILDENAFIL [Concomitant]
     Indication: ERECTILE DYSFUNCTION
     Dates: start: 200611
  5. VENLAFAXINE [Concomitant]
     Indication: DEPRESSION
     Route: 048
     Dates: start: 201203

REACTIONS (1)
  - Lipids increased [Unknown]
